FAERS Safety Report 24237716 (Version 2)
Quarter: 2024Q3

REPORT INFORMATION
  Report Type: Spontaneous
  Country: US (occurrence: US)
  Receive Date: 20240822
  Receipt Date: 20240823
  Transmission Date: 20241017
  Serious: Yes (Hospitalization, Other)
  Sender: MERCK
  Company Number: US-009507513-2407USA015199

PATIENT
  Age: 57 Year
  Sex: Male
  Weight: 92.5 kg

DRUGS (22)
  1. WINREVAIR [Suspect]
     Active Substance: SOTATERCEPT-CSRK
     Dosage: UNK
  2. REMODULIN [Suspect]
     Active Substance: TREPROSTINIL
     Indication: Pulmonary arterial hypertension
     Dosage: 0.093 MICROGRAM PER KILOGRAM
     Route: 058
     Dates: start: 20211005
  3. POTASSIUM CHLORIDE [Concomitant]
     Active Substance: POTASSIUM CHLORIDE
  4. CORICIDIN HBP COLD AND FLU [Concomitant]
     Active Substance: ACETAMINOPHEN\CHLORPHENIRAMINE MALEATE
  5. LASIX [Concomitant]
     Active Substance: FUROSEMIDE
  6. OPSUMIT [Concomitant]
     Active Substance: MACITENTAN
  7. KETAMINE HYDROCHLORIDE [Concomitant]
     Active Substance: KETAMINE HYDROCHLORIDE
  8. LECITHIN [Concomitant]
     Active Substance: LECITHIN
  9. KLOR-CON M20 [Concomitant]
     Active Substance: POTASSIUM CHLORIDE
  10. SILDENAFIL [Concomitant]
     Active Substance: SILDENAFIL
  11. PROAIR HFA [Concomitant]
     Active Substance: ALBUTEROL SULFATE
  12. CLONIDINE [Concomitant]
     Active Substance: CLONIDINE
  13. KETOPROFEN [Concomitant]
     Active Substance: KETOPROFEN
  14. OXYGEN [Concomitant]
     Active Substance: OXYGEN
  15. VITAMIN D3 [Concomitant]
     Active Substance: CHOLECALCIFEROL
  16. BENADRYL ALLERGY PLUS CONGESTION [Concomitant]
     Active Substance: DIPHENHYDRAMINE HYDROCHLORIDE\PHENYLEPHRINE HYDROCHLORIDE
  17. LIDOCAINE HYDROCHLORIDE [Concomitant]
     Active Substance: LIDOCAINE HYDROCHLORIDE
  18. AMITRIPTYLINE HYDROCHLORIDE [Concomitant]
     Active Substance: AMITRIPTYLINE HYDROCHLORIDE
  19. GABAPENTIN [Concomitant]
     Active Substance: GABAPENTIN
  20. POLOXAMER [Concomitant]
     Active Substance: POLOXAMER
  21. LOVASTATIN [Concomitant]
     Active Substance: LOVASTATIN
  22. ZYRTEC [Concomitant]
     Active Substance: CETIRIZINE HYDROCHLORIDE

REACTIONS (3)
  - Cerebrovascular accident [Unknown]
  - Mental status changes [Unknown]
  - Platelet count decreased [Unknown]

NARRATIVE: CASE EVENT DATE: 20240806
